FAERS Safety Report 4432497-5 (Version None)
Quarter: 2004Q3

REPORT INFORMATION
  Report Type: 
  Country: None (occurrence: None)
  Receive Date: 20040817
  Receipt Date: 20040805
  Transmission Date: 20050211
  Serious: Yes (Other)
  Sender: FDA-Public Use
  Company Number: 200410279BBE

PATIENT
  Sex: Male

DRUGS (1)
  1. KONYNE [Suspect]
     Indication: FACTOR IX DEFICIENCY
     Dates: start: 19790101

REACTIONS (2)
  - HEPATITIS B [None]
  - HEPATITIS C [None]
